FAERS Safety Report 5777549-2 (Version None)
Quarter: 2008Q2

REPORT INFORMATION
  Report Type: 
  Country: None (occurrence: None)
  Receive Date: 20080618
  Receipt Date: 20080606
  Transmission Date: 20081010
  Serious: Yes (Other)
  Sender: FDA-Public Use
  Company Number: US-PFIZER INC-2008049553

PATIENT
  Sex: Female
  Weight: 104 kg

DRUGS (7)
  1. CHANTIX [Suspect]
     Indication: SMOKING CESSATION THERAPY
  2. GLIPIZIDE [Concomitant]
  3. METFORMIN [Concomitant]
  4. PRAVASTATIN [Concomitant]
  5. SPIRIVA [Concomitant]
  6. ADVAIR DISKUS 100/50 [Concomitant]
  7. ASTELIN [Concomitant]

REACTIONS (1)
  - EAR DISORDER [None]
